FAERS Safety Report 9119704 (Version 1)
Quarter: 2013Q1

REPORT INFORMATION
  Report Type: Spontaneous
  Country: US (occurrence: US)
  Receive Date: 20130207
  Receipt Date: 20130207
  Transmission Date: 20140127
  Serious: Yes (Other)
  Sender: FDA-Public Use
  Company Number: US-RB-049188-13

PATIENT
  Age: 76 Year
  Sex: Female

DRUGS (2)
  1. CEPACOL SORE THROAT MAXIMUM NUMBING HONEY LEMON [Suspect]
     Indication: PRODUCT USED FOR UNKNOWN INDICATION
     Dosage: PATIENTY TOOK 1 LOZENGE.
     Route: 048
  2. CEPACOL MAXIMUM NUMBING LOZENGES HONEY LEMON (MENTHOL) [Suspect]

REACTIONS (3)
  - Throat tightness [Recovered/Resolved]
  - Dyspnoea [Recovered/Resolved]
  - Dizziness [Recovered/Resolved]
